FAERS Safety Report 22541954 (Version 1)
Quarter: 2023Q2

REPORT INFORMATION
  Report Type: Spontaneous
  Country: US (occurrence: US)
  Receive Date: 20230609
  Receipt Date: 20230609
  Transmission Date: 20230722
  Serious: Yes (Other)
  Sender: FDA-Public Use
  Company Number: US-PFIZER INC-PV202300101595

PATIENT
  Sex: Female
  Weight: 72.5 kg

DRUGS (1)
  1. IBRANCE [Suspect]
     Active Substance: PALBOCICLIB
     Dosage: 100 MG, CYCLIC (TAKE 1 TABLET (100 MG) ONCE DAILY. TAKE FOR 21 DAYS ON, FOLLOWED BY 7 DAYS OFF.
     Route: 048

REACTIONS (2)
  - Cardiac failure [Unknown]
  - Peripheral swelling [Unknown]
